FAERS Safety Report 11898148 (Version 1)
Quarter: 2016Q1

REPORT INFORMATION
  Report Type: Spontaneous
  Country: US (occurrence: US)
  Receive Date: 20160108
  Receipt Date: 20160108
  Transmission Date: 20160526
  Serious: Yes (Death, Hospitalization)
  Sender: FDA-Public Use
  Company Number: US-UNITED THERAPEUTICS-UNT-2015-016709

PATIENT
  Age: 73 Year
  Sex: Male
  Weight: 98.78 kg

DRUGS (1)
  1. TYVASO [Suspect]
     Active Substance: TREPROSTINIL
     Indication: PULMONARY ARTERIAL HYPERTENSION
     Dosage: 18-54 ?G, QID
     Dates: start: 20151207

REACTIONS (2)
  - Pulmonary oedema [Fatal]
  - Renal impairment [Unknown]

NARRATIVE: CASE EVENT DATE: 20151231
